FAERS Safety Report 4509332-X (Version None)
Quarter: 2004Q4

REPORT INFORMATION
  Report Type: 
  Country: None (occurrence: None)
  Receive Date: 20041025
  Receipt Date: 20040709
  Transmission Date: 20050328
  Serious: Yes (Other)
  Sender: FDA-Public Use
  Company Number: US-JNJFOC-20040703004

PATIENT
  Age: 37 Year
  Sex: Female

DRUGS (6)
  1. INFLIXIMAB (INFLIXIMAB, RECOMBINANT) LYOPHILIZED POWDER [Suspect]
     Indication: RHEUMATOID ARTHRITIS
     Dosage: , 1 IN 4 WEEK, INTRAVENOUS
     Route: 042
     Dates: start: 20011001
  2. TERAZOL 7 (TERCONAZOLE) UNSPECIFIED [Concomitant]
  3. PRILOSEC [Concomitant]
  4. NAPROXEN [Concomitant]
  5. MULTIVITAMIN (MULTIVITAMINS) [Concomitant]
  6. TYLENOL [Concomitant]

REACTIONS (1)
  - FUNGAL INFECTION [None]
